FAERS Safety Report 6879969-1 (Version None)
Quarter: 2010Q2

REPORT INFORMATION
  Report Type: 
  Country: None (occurrence: None)
  Receive Date: 20100630
  Receipt Date: 20100219
  Transmission Date: 20101027
  Serious: Yes (Other)
  Sender: FDA-Public Use
  Company Number: 2010022356

PATIENT
  Age: 60 Year
  Sex: Female
  Weight: 77.1 kg

DRUGS (1)
  1. ZMAX [Suspect]
     Indication: PNEUMONIA
     Dosage: 250 MG, 1X/DAY, ORAL
     Route: 048
     Dates: start: 20100208, end: 20100214

REACTIONS (3)
  - PHOTOSENSITIVITY REACTION [None]
  - RASH [None]
  - VAGINAL INFECTION [None]
